FAERS Safety Report 14759935 (Version 1)
Quarter: 2018Q2

REPORT INFORMATION
  Report Type: Spontaneous
  Country: US (occurrence: US)
  Receive Date: 20180413
  Receipt Date: 20180413
  Transmission Date: 20180711
  Serious: No
  Sender: FDA-Public Use
  Company Number: US-MYLANLABS-2018M1019968

PATIENT
  Age: 64 Year
  Sex: Male
  Weight: 111.11 kg

DRUGS (1)
  1. ALPROSTADIL. [Suspect]
     Active Substance: ALPROSTADIL
     Indication: ERECTILE DYSFUNCTION
     Dosage: 500 ?G, UNK
     Route: 066
     Dates: start: 201611

REACTIONS (1)
  - Drug ineffective [Unknown]
